FAERS Safety Report 4317086-5 (Version None)
Quarter: 2004Q1

REPORT INFORMATION
  Report Type: 
  Country: None (occurrence: None)
  Receive Date: 20040312
  Receipt Date: 20040302
  Transmission Date: 20041129
  Serious: Yes (Life-Threatening, Hospitalization, Other)
  Sender: FDA-Public Use
  Company Number: 2003-06-0256

PATIENT
  Age: 65 Year
  Sex: Male
  Weight: 58 kg

DRUGS (10)
  1. CELESTONE [Suspect]
     Indication: ASTHMA
     Dosage: 1.5MG QD ORAL; 0.5MG QD ORAL
     Route: 048
     Dates: end: 20030101
  2. CELESTONE [Suspect]
     Indication: ASTHMA
     Dosage: 1.5MG QD ORAL; 0.5MG QD ORAL
     Route: 048
     Dates: start: 20030101, end: 20030228
  3. CORTANCYL [Suspect]
     Indication: INFLAMMATION
     Dosage: 60 MG QD ORAL
     Route: 048
     Dates: start: 20030315
  4. SOLU-MEDROL [Suspect]
     Indication: INFLAMMATION
     Dosage: 1 BOLUS INTRAVENOUS
     Route: 040
     Dates: start: 20030311
  5. VIOXX [Suspect]
     Indication: DRUG USE FOR UNKNOWN INDICATION
     Dosage: 1 QD ORAL
     Route: 048
  6. BRICANYL [Concomitant]
  7. SERETIDE (SALMETEROL XINAFOATE/FLUTICASONE PROPIONATE) [Concomitant]
  8. HYPERIUM (RILMENIDINE) [Concomitant]
  9. GLIMEPIRIDE [Concomitant]
  10. ATROVENT [Concomitant]

REACTIONS (19)
  - ALBUMIN CSF INCREASED [None]
  - ALLERGIC GRANULOMATOUS ANGIITIS [None]
  - ANTINUCLEAR ANTIBODY POSITIVE [None]
  - BACK PAIN [None]
  - CONDITION AGGRAVATED [None]
  - CONFUSIONAL STATE [None]
  - CSF NEUTROPHIL COUNT POSITIVE [None]
  - EOSINOPHILIA [None]
  - HAEMODYNAMIC INSTABILITY [None]
  - INTERVERTEBRAL DISCITIS [None]
  - PARALYSIS FLACCID [None]
  - POSTOPERATIVE INFECTION [None]
  - QUADRIPLEGIA [None]
  - RESPIRATORY DISTRESS [None]
  - SCIATICA [None]
  - STAPHYLOCOCCAL SEPSIS [None]
  - SYSTEMIC INFLAMMATORY RESPONSE SYNDROME [None]
  - TENOSYNOVITIS [None]
  - WOUND INFECTION [None]
